FAERS Safety Report 25922997 (Version 2)
Quarter: 2025Q4

REPORT INFORMATION
  Report Type: Spontaneous
  Country: US (occurrence: US)
  Receive Date: 20251015
  Receipt Date: 20251022
  Transmission Date: 20260117
  Serious: No
  Sender: ABBVIE
  Company Number: US-ABBVIE-6503484

PATIENT
  Age: 73 Year
  Sex: Male
  Weight: 81.646 kg

DRUGS (1)
  1. CREON [Suspect]
     Active Substance: PANCRELIPASE AMYLASE\PANCRELIPASE LIPASE\PANCRELIPASE PROTEASE
     Indication: Pancreatic failure
     Dosage: FORM STRENGTH-3600 UNITS
     Route: 048
     Dates: start: 202303

REACTIONS (7)
  - Bacterial infection [Recovering/Resolving]
  - Diarrhoea [Recovering/Resolving]
  - Product physical issue [Not Recovered/Not Resolved]
  - Product use complaint [Not Recovered/Not Resolved]
  - Product physical issue [Unknown]
  - Gastrointestinal inflammation [Recovering/Resolving]
  - Escherichia infection [Recovering/Resolving]

NARRATIVE: CASE EVENT DATE: 20250101
